FAERS Safety Report 7086796-1 (Version None)
Quarter: 2010Q4

REPORT INFORMATION
  Report Type: 
  Country: None (occurrence: None)
  Receive Date: 20101105
  Receipt Date: 20101025
  Transmission Date: 20110411
  Serious: Yes (Hospitalization)
  Sender: FDA-Public Use
  Company Number: US-WATSON-2010-14116

PATIENT
  Age: 80 Year
  Sex: Female

DRUGS (3)
  1. ALENDRONATE SODIUM [Suspect]
     Dosage: 70 MG, 1/WEEK
     Route: 048
  2. ASPIRIN [Suspect]
     Dosage: 81 MG, DAILY
     Route: 048
  3. FERROUS SULFATE [Suspect]
     Dosage: 300 MG, TID
     Route: 048

REACTIONS (3)
  - CHEST PAIN [None]
  - HAEMATOMA [None]
  - OESOPHAGEAL INJURY [None]
